FAERS Safety Report 18601854 (Version 1)
Quarter: 2020Q4

REPORT INFORMATION
  Report Type: Spontaneous
  Country: RU (occurrence: RU)
  Receive Date: 20201210
  Receipt Date: 20201210
  Transmission Date: 20210114
  Serious: Yes (Hospitalization)
  Sender: FDA-Public Use
  Company Number: RU-SA-2020SA313610

PATIENT

DRUGS (4)
  1. TOUJEO [Suspect]
     Active Substance: INSULIN GLARGINE
     Indication: TYPE 2 DIABETES MELLITUS
     Dosage: UNK
     Route: 058
     Dates: start: 2019
  2. DEXAMETHASONE. [Suspect]
     Active Substance: DEXAMETHASONE
     Indication: INFECTIOUS DISEASE CARRIER
     Dosage: 8 MG IN THE MORNING AND 4 MG IN THE EVENING
     Route: 030
     Dates: start: 20201103, end: 20201105
  3. TOUJEO [Suspect]
     Active Substance: INSULIN GLARGINE
     Dosage: 20 IU, QD
     Route: 058
     Dates: start: 202010
  4. INSULIN LISPRO [Suspect]
     Active Substance: INSULIN LISPRO
     Indication: TYPE 2 DIABETES MELLITUS
     Dosage: 12 IU, TID
     Route: 058
     Dates: start: 2012

REACTIONS (7)
  - General physical health deterioration [Recovering/Resolving]
  - Hyperglycaemia [Not Recovered/Not Resolved]
  - Lung disorder [Recovering/Resolving]
  - COVID-19 [Recovering/Resolving]
  - Body temperature increased [Recovered/Resolved]
  - Asthenia [Recovering/Resolving]
  - Dyspnoea [Recovering/Resolving]

NARRATIVE: CASE EVENT DATE: 20201027
